FAERS Safety Report 8617189-0 (Version None)
Quarter: 2012Q3

REPORT INFORMATION
  Report Type: 
  Country: None (occurrence: None)
  Receive Date: 20120823
  Receipt Date: 20120817
  Transmission Date: 20120928
  Serious: Yes (Hospitalization)
  Sender: FDA-Public Use
  Company Number: PHHY2012AT051512

PATIENT
  Age: 85 Year
  Sex: Female
  Weight: 49 kg

DRUGS (3)
  1. ASPIRIN [Suspect]
     Dosage: 100 MG, UNK
     Route: 048
  2. AMIODARONE HYDROCHLORIDE [Suspect]
     Indication: ATRIAL FIBRILLATION
     Dosage: 2 DF, TID
     Route: 048
     Dates: start: 20120529, end: 20120601
  3. PANTOPRAZOLE SODIUM [Suspect]
     Dosage: 20 MG, UNK
     Route: 048

REACTIONS (4)
  - ASPARTATE AMINOTRANSFERASE INCREASED [None]
  - GASTRITIS [None]
  - ALANINE AMINOTRANSFERASE INCREASED [None]
  - LIVER DISORDER [None]
